FAERS Safety Report 4654851-9 (Version None)
Quarter: 2005Q2

REPORT INFORMATION
  Report Type: 
  Country: None (occurrence: None)
  Receive Date: 20050506
  Receipt Date: 20041222
  Transmission Date: 20051028
  Serious: No
  Sender: FDA-Public Use
  Company Number: US-GLAXOSMITHKLINE-A0538316A

PATIENT
  Age: 8 Year
  Sex: Male

DRUGS (4)
  1. AMOXICILLIN [Suspect]
     Indication: EAR INFECTION
     Route: 048
     Dates: end: 20041217
  2. AUGMENTIN '125' [Suspect]
     Indication: EAR INFECTION
     Dosage: 400MG TWICE PER DAY
     Route: 048
     Dates: end: 20041217
  3. MULTIPLE MEDS [Concomitant]
  4. PROGRAF [Concomitant]

REACTIONS (3)
  - DIARRHOEA [None]
  - RESPIRATORY TRACT CONGESTION [None]
  - VOMITING [None]
